FAERS Safety Report 10058193 (Version 1)
Quarter: 2014Q2

REPORT INFORMATION
  Report Type: Spontaneous
  Country: US (occurrence: None)
  Receive Date: 20140403
  Receipt Date: 20140403
  Transmission Date: 20141212
  Serious: Yes (Disabling, Other)
  Sender: FDA-Public Use
  Company Number: None

PATIENT
  Age: 79 Year
  Sex: Female
  Weight: 65.77 kg

DRUGS (12)
  1. LEVOFLOXACIN 500 MG [Suspect]
     Indication: PNEUMONIA
     Route: 048
     Dates: start: 20140210, end: 20140219
  2. CLOPIDOGREL [Concomitant]
  3. TRIAMETERNE/HCT2 [Concomitant]
  4. METOPROLOL TARTRATE [Concomitant]
  5. TIMILOL MALEATE SOL [Concomitant]
  6. XALATAN SOL [Concomitant]
  7. GABOPENTIN [Concomitant]
  8. FISH OIL [Concomitant]
  9. MULTI-VITAMIN [Concomitant]
  10. CALCIUM [Concomitant]
  11. MAGNESIUM [Concomitant]
  12. VIT D [Concomitant]

REACTIONS (4)
  - Tendonitis [None]
  - Pain [None]
  - Insomnia [None]
  - Pain in extremity [None]
